FAERS Safety Report 8022785-8 (Version None)
Quarter: 2012Q1

REPORT INFORMATION
  Report Type: 
  Country: None (occurrence: None)
  Receive Date: 20120104
  Receipt Date: 20111229
  Transmission Date: 20120608
  Serious: Yes (Hospitalization, Other)
  Sender: FDA-Public Use
  Company Number: ES-ABBOTT-11P-144-0883838-00

PATIENT
  Age: 56 Year
  Sex: Female

DRUGS (3)
  1. ADALIMUMAB [Suspect]
     Route: 058
     Dates: start: 20080101, end: 20080101
  2. ADALIMUMAB [Suspect]
     Dosage: ONLY ONE DOSE (THE SECOND ONE)
     Route: 058
     Dates: start: 20080101, end: 20080101
  3. ADALIMUMAB [Suspect]
     Indication: COLITIS MICROSCOPIC
     Dosage: ONLY ONE DOSE (THE FIRST ONE)
     Route: 058
     Dates: start: 20080101, end: 20080101

REACTIONS (2)
  - COLECTOMY [None]
  - DRUG INEFFECTIVE [None]
